FAERS Safety Report 6247096-2 (Version None)
Quarter: 2009Q2

REPORT INFORMATION
  Report Type: 
  Country: None (occurrence: None)
  Receive Date: 20090626
  Receipt Date: 20090624
  Transmission Date: 20091009
  Serious: Yes (Death, Life-Threatening, Hospitalization)
  Sender: FDA-Public Use
  Company Number: PHHO2008CZ00820

PATIENT
  Sex: Female
  Weight: 47 kg

DRUGS (7)
  1. NEORAL [Suspect]
     Indication: LIVER TRANSPLANT
     Dosage: 200 MG / 24H
     Route: 048
     Dates: start: 20071115, end: 20080125
  2. NEORAL [Suspect]
     Dosage: 150 MG, Q12H
     Route: 048
     Dates: start: 20080126
  3. NEORAL [Suspect]
     Dosage: 50 MG, BID
     Route: 048
     Dates: start: 20080506, end: 20081023
  4. NEORAL [Suspect]
     Dosage: UNK
     Dates: end: 20090123
  5. COPEGUS [Concomitant]
     Dosage: 500 MG
     Route: 048
     Dates: start: 20080128, end: 20080715
  6. COPEGUS [Concomitant]
     Dosage: 200 MG
     Route: 048
     Dates: start: 20080716, end: 20081125
  7. PEGASYS [Concomitant]
     Dosage: 180/ WEEK
     Route: 048
     Dates: start: 20080128

REACTIONS (14)
  - BIOPSY LIVER [None]
  - COAGULOPATHY [None]
  - CONCOMITANT DISEASE PROGRESSION [None]
  - ENTEROCOCCAL INFECTION [None]
  - HEPATIC ENZYME INCREASED [None]
  - HEPATITIS C [None]
  - HEPATITIS CHOLESTATIC [None]
  - LIVER TRANSPLANT REJECTION [None]
  - METASTASES TO CENTRAL NERVOUS SYSTEM [None]
  - MULTI-ORGAN FAILURE [None]
  - NON-HODGKIN'S LYMPHOMA [None]
  - PNEUMONIA [None]
  - RESPIRATORY FAILURE [None]
  - SEPSIS [None]
